FAERS Safety Report 8049010-6 (Version None)
Quarter: 2012Q1

REPORT INFORMATION
  Report Type: 
  Country: None (occurrence: None)
  Receive Date: 20120117
  Receipt Date: 20120106
  Transmission Date: 20120608
  Serious: Yes (Hospitalization)
  Sender: FDA-Public Use
  Company Number: JP-NOVOPROD-340231

PATIENT
  Age: 63 Year
  Sex: Female
  Weight: 84 kg

DRUGS (12)
  1. WARFARIN SODIUM [Concomitant]
     Dosage: 3.5 MG, QD
     Route: 048
     Dates: end: 20111121
  2. OMEPRAZOLE [Concomitant]
     Dosage: 10 MG, QD
     Route: 048
     Dates: end: 20111121
  3. ALLOPURINOL [Concomitant]
     Dosage: 100 MG, QD
     Route: 048
     Dates: end: 20111121
  4. FERROMIA                           /00023516/ [Concomitant]
     Dosage: 150 MG, QD
     Route: 048
     Dates: end: 20111121
  5. VICTOZA [Suspect]
     Indication: LATENT AUTOIMMUNE DIABETES IN ADULTS
     Dosage: 0.3 MG, QD
     Route: 058
     Dates: start: 20111111
  6. VICTOZA [Suspect]
     Dosage: 0.6 MG, UNK
     Route: 058
     Dates: start: 20111118, end: 20111122
  7. ASPIRIN [Concomitant]
     Dosage: 100 MG, QD
     Route: 048
     Dates: end: 20111121
  8. LASIX [Concomitant]
     Dosage: 40 MG, QD
     Route: 048
     Dates: end: 20111121
  9. RHYTHMY [Concomitant]
     Dosage: 2 MG, QD
     Route: 048
     Dates: end: 20111121
  10. LIPITOR [Concomitant]
     Dosage: 10 MG, QD
     Route: 048
     Dates: end: 20111121
  11. MICARDIS [Concomitant]
     Dosage: 40 MG, QD
     Route: 048
     Dates: end: 20111121
  12. ARGAMATE [Concomitant]
     Dosage: 25 G, QD
     Route: 048
     Dates: end: 20111121

REACTIONS (2)
  - HYPERGLYCAEMIC HYPEROSMOLAR NONKETOTIC SYNDROME [None]
  - PANCREATITIS ACUTE [None]
